FAERS Safety Report 17607648 (Version 1)
Quarter: 2020Q2

REPORT INFORMATION
  Report Type: Spontaneous
  Country: US (occurrence: US)
  Receive Date: 20200401
  Receipt Date: 20200401
  Transmission Date: 20200713
  Serious: No
  Sender: FDA-Public Use
  Company Number: US-ALEMBIC PHARMACUETICALS LIMITED-2020SCAL000131

PATIENT

DRUGS (1)
  1. OLMESARTAN MEDOXIMIL [Suspect]
     Active Substance: OLMESARTAN MEDOXOMIL
     Indication: PRODUCT USED FOR UNKNOWN INDICATION
     Dosage: 40 MILLIGRAM, OVAL YELLOW TABLET WITH IMPRINT OF L324
     Route: 048
     Dates: start: 20200203

REACTIONS (3)
  - Product odour abnormal [Unknown]
  - Product substitution issue [Unknown]
  - Gastric disorder [Unknown]
